FAERS Safety Report 12310090 (Version 1)
Quarter: 2016Q2

REPORT INFORMATION
  Report Type: Spontaneous
  Country: US (occurrence: US)
  Receive Date: 20160427
  Receipt Date: 20160427
  Transmission Date: 20160815
  Serious: Yes (Hospitalization)
  Sender: FDA-Public Use
  Company Number: US-ACTAVIS-2016-07414

PATIENT

DRUGS (1)
  1. METOPROLOL SUCCINATE (ACTAVIS LABORATORIES FL) [Suspect]
     Active Substance: METOPROLOL SUCCINATE
     Indication: PRODUCT USED FOR UNKNOWN INDICATION
     Dosage: UNK, UNKNOWN
     Route: 065

REACTIONS (3)
  - Ventricular extrasystoles [Recovering/Resolving]
  - Product substitution issue [Recovering/Resolving]
  - Dyspnoea [Recovering/Resolving]
